FAERS Safety Report 16443611 (Version 1)
Quarter: 2019Q2

REPORT INFORMATION
  Report Type: Spontaneous
  Country: US (occurrence: US)
  Receive Date: 20190618
  Receipt Date: 20190618
  Transmission Date: 20190711
  Serious: No
  Sender: FDA-Public Use
  Company Number: US-AMGEN-USASP2019094073

PATIENT
  Age: 81 Year
  Sex: Female

DRUGS (3)
  1. PROLIA [Suspect]
     Active Substance: DENOSUMAB
     Indication: OSTEOPOROSIS POSTMENOPAUSAL
     Dosage: 60 MILLIGRAM, Q6MO
     Route: 065
     Dates: start: 2017
  2. CALCIUM [Concomitant]
     Active Substance: CALCIUM
     Indication: ARTHRITIS
     Dosage: 1200 MILLIGRAM
  3. MOTRIN [Concomitant]
     Active Substance: IBUPROFEN
     Indication: ARTHRITIS
     Dosage: 60 MILLIGRAM, QD

REACTIONS (3)
  - Hypoaesthesia [Unknown]
  - Crepitations [Unknown]
  - Arthralgia [Unknown]
